FAERS Safety Report 15834062 (Version 1)
Quarter: 2019Q1

REPORT INFORMATION
  Report Type: Spontaneous
  Country: US (occurrence: US)
  Receive Date: 20190116
  Receipt Date: 20190116
  Transmission Date: 20190417
  Serious: Yes (Other)
  Sender: FDA-Public Use
  Company Number: US-AQUESTIVE THERAPEUTICS, INC.-2019AQU00001

PATIENT
  Age: 28 Year
  Sex: Male

DRUGS (7)
  1. SYMPAZAN [Suspect]
     Active Substance: CLOBAZAM
     Dosage: 10 MG, 2X/DAY
     Route: 048
     Dates: start: 20181228, end: 201901
  2. MEDICAL MARIJUANA [Suspect]
     Active Substance: CANNABIS SATIVA SUBSP. INDICA TOP
     Indication: SEIZURE PROPHYLAXIS
  3. KEPPRA [Suspect]
     Active Substance: LEVETIRACETAM
     Route: 048
  4. FYCOMPA [Suspect]
     Active Substance: PERAMPANEL
     Route: 048
  5. LAMICTAL [Concomitant]
     Active Substance: LAMOTRIGINE
  6. SYMPAZAN [Suspect]
     Active Substance: CLOBAZAM
     Dosage: 10 MG, 2X/DAY
     Route: 048
     Dates: start: 20181209, end: 20181216
  7. SYMPAZAN [Suspect]
     Active Substance: CLOBAZAM
     Dosage: 20 MG, 2X/DAY
     Route: 048
     Dates: start: 20190105, end: 20190108

REACTIONS (38)
  - Loss of consciousness [Unknown]
  - Blindness [Unknown]
  - Trance [Unknown]
  - Nausea [Unknown]
  - Somnolence [Unknown]
  - Anxiety [Unknown]
  - Cyanosis [Unknown]
  - Depressed level of consciousness [Unknown]
  - Odynophagia [Unknown]
  - Vomiting [Unknown]
  - Dysarthria [Unknown]
  - Euphoric mood [Unknown]
  - Heart rate irregular [Unknown]
  - Feeling abnormal [Unknown]
  - Hypoaesthesia oral [Unknown]
  - Peripheral swelling [Unknown]
  - Feeling cold [Unknown]
  - Decreased appetite [Unknown]
  - Insomnia [Unknown]
  - Withdrawal syndrome [Unknown]
  - Malaise [Unknown]
  - Apparent death [Unknown]
  - Oral discomfort [Unknown]
  - Dysgeusia [Unknown]
  - Product dose omission [Unknown]
  - Seizure [Unknown]
  - Irritability [Unknown]
  - Contusion [Unknown]
  - Pain [Unknown]
  - Dyskinesia [Unknown]
  - Crying [Unknown]
  - Corrosive oropharyngeal injury [Unknown]
  - Ageusia [Unknown]
  - Gait disturbance [Unknown]
  - Mental impairment [Unknown]
  - Muscle spasms [Unknown]
  - Depression [Unknown]
  - Hallucination [Unknown]

NARRATIVE: CASE EVENT DATE: 201812
